FAERS Safety Report 4499078-9 (Version None)
Quarter: 2004Q3

REPORT INFORMATION
  Report Type: 
  Country: None (occurrence: None)
  Receive Date: 20040927
  Receipt Date: 20040602
  Transmission Date: 20050211
  Serious: No
  Sender: FDA-Public Use
  Company Number: USA040669047

PATIENT
  Age: 5 Year
  Sex: Female
  Weight: 14 kg

DRUGS (1)
  1. STRATTERA [Suspect]
     Indication: ATTENTION DEFICIT/HYPERACTIVITY DISORDER
     Dosage: 25 MG IN THE MORNING
     Dates: start: 20040301

REACTIONS (2)
  - PRESCRIBED OVERDOSE [None]
  - RETCHING [None]
